FAERS Safety Report 8820696 (Version 1)
Quarter: 2012Q4

REPORT INFORMATION
  Report Type: 
  Country: CA (occurrence: CA)
  Receive Date: 20121002
  Receipt Date: 20121002
  Transmission Date: 20130627
  Serious: Yes (Death, Other)
  Sender: FDA-Public Use
  Company Number: PHHY2011CA21790

PATIENT
  Sex: Female

DRUGS (2)
  1. ZOMETA [Suspect]
     Indication: RENAL CELL CARCINOMA
     Dosage: 3.3 mg every 08 weeks
     Route: 042
     Dates: start: 20101016
  2. ZOMETA [Suspect]
     Dosage: 4 mg, once in every 2 months
     Route: 042
     Dates: start: 20101016, end: 20120730

REACTIONS (9)
  - Death [Fatal]
  - Neoplasm progression [Unknown]
  - Malignant neoplasm progression [Unknown]
  - Metastases to bone [Unknown]
  - Musculoskeletal disorder [Unknown]
  - Pain [Unknown]
  - Weight decreased [Unknown]
  - Decreased appetite [Unknown]
  - Dyspnoea [Unknown]
